FAERS Safety Report 24434527 (Version 3)
Quarter: 2025Q3

REPORT INFORMATION
  Report Type: Spontaneous
  Country: JP (occurrence: JP)
  Receive Date: 20241014
  Receipt Date: 20250810
  Transmission Date: 20251020
  Serious: No
  Sender: ALEXION PHARMACEUTICALS
  Company Number: JP-ASTRAZENECA-240106638_061310_P_1

PATIENT
  Age: 90 Year
  Sex: Female

DRUGS (2)
  1. CRESTOR [Suspect]
     Active Substance: ROSUVASTATIN CALCIUM
     Indication: Blood cholesterol increased
  2. CRESTOR [Suspect]
     Active Substance: ROSUVASTATIN CALCIUM

REACTIONS (2)
  - Low density lipoprotein decreased [Unknown]
  - Muscular weakness [Unknown]
